FAERS Safety Report 23158661 (Version 2)
Quarter: 2024Q1

REPORT INFORMATION
  Report Type: Spontaneous
  Country: CA (occurrence: None)
  Receive Date: 20231108
  Receipt Date: 20240119
  Transmission Date: 20240410
  Serious: Yes (Other)
  Sender: FDA-Public Use
  Company Number: CA-PFIZER INC-202300354234

PATIENT
  Age: 59 Year
  Sex: Female

DRUGS (9)
  1. METHOTREXATE [Suspect]
     Active Substance: METHOTREXATE
     Indication: Product used for unknown indication
  2. LEFLUNOMIDE [Suspect]
     Active Substance: LEFLUNOMIDE
     Indication: Product used for unknown indication
  3. CIMZIA [Concomitant]
     Active Substance: CERTOLIZUMAB PEGOL
  4. HUMIRA [Concomitant]
     Active Substance: ADALIMUMAB
  5. OTEZLA [Concomitant]
     Active Substance: APREMILAST
  6. RINVOQ [Concomitant]
     Active Substance: UPADACITINIB
  7. SKYRIZI [Concomitant]
     Active Substance: RISANKIZUMAB-RZAA
  8. STELARA [Concomitant]
     Active Substance: USTEKINUMAB
  9. SULFASALAZINE [Concomitant]
     Active Substance: SULFASALAZINE

REACTIONS (1)
  - Primary biliary cholangitis [Unknown]
